FAERS Safety Report 7051783-6 (Version None)
Quarter: 2010Q4

REPORT INFORMATION
  Report Type: 
  Country: None (occurrence: None)
  Receive Date: 20101019
  Receipt Date: 20101008
  Transmission Date: 20110411
  Serious: No
  Sender: FDA-Public Use
  Company Number: US-JNJFOC-20101002903

PATIENT
  Sex: Female
  Weight: 77.11 kg

DRUGS (3)
  1. FENTANYL [Suspect]
     Indication: GUILLAIN-BARRE SYNDROME
     Route: 062
  2. HYDROCHLOROTHIAZIDE [Concomitant]
     Indication: HYPERPARATHYROIDISM
     Route: 048
  3. PHOSPHORUS [Concomitant]
     Indication: HYPERPARATHYROIDISM
     Route: 048

REACTIONS (4)
  - INADEQUATE ANALGESIA [None]
  - PAIN IN EXTREMITY [None]
  - PRODUCT ADHESION ISSUE [None]
  - WRONG TECHNIQUE IN DRUG USAGE PROCESS [None]
